FAERS Safety Report 23073566 (Version 2)
Quarter: 2023Q4

REPORT INFORMATION
  Report Type: Spontaneous
  Country: MY (occurrence: MY)
  Receive Date: 20231017
  Receipt Date: 20231018
  Transmission Date: 20240109
  Serious: Yes (Life-Threatening, Hospitalization)
  Sender: FDA-Public Use
  Company Number: MY-BAUSCH-BL-2023-015058

PATIENT
  Age: 82 Year
  Sex: Female

DRUGS (2)
  1. METFORMIN [Suspect]
     Active Substance: METFORMIN HYDROCHLORIDE
     Indication: Type 2 diabetes mellitus
     Dosage: METFORMIN 1 G TWICE DAILY
     Route: 065
  2. GLICLAZIDE [Concomitant]
     Active Substance: GLICLAZIDE
     Indication: Type 2 diabetes mellitus
     Dosage: 120 MG ONCE DAILY
     Route: 065

REACTIONS (3)
  - Metabolic acidosis [Recovered/Resolved]
  - Septic shock [Recovered/Resolved]
  - Lactic acidosis [Recovered/Resolved]
